FAERS Safety Report 10180278 (Version 1)
Quarter: 2014Q2

REPORT INFORMATION
  Report Type: Spontaneous
  Country: US (occurrence: US)
  Receive Date: 20140519
  Receipt Date: 20140519
  Transmission Date: 20141212
  Serious: Yes (Disabling, Other)
  Sender: FDA-Public Use
  Company Number: US-TEVA-482453USA

PATIENT
  Sex: Female

DRUGS (3)
  1. COPAXONE [Suspect]
  2. AVONEX [Concomitant]
     Dates: start: 20090930, end: 20101031
  3. AVONEX [Concomitant]
     Dates: start: 20111111

REACTIONS (1)
  - Disability [Not Recovered/Not Resolved]
